FAERS Safety Report 20349220 (Version 4)
Quarter: 2024Q3

REPORT INFORMATION
  Report Type: Spontaneous
  Country: ES (occurrence: ES)
  Receive Date: 20220119
  Receipt Date: 20240715
  Transmission Date: 20241017
  Serious: Yes (Death, Hospitalization, Other)
  Sender: ASTELLAS
  Company Number: ES-ASTPRD-AER-2022-000103

PATIENT
  Sex: Female

DRUGS (3)
  1. GILTERITINIB [Suspect]
     Active Substance: GILTERITINIB
     Indication: FLT3 gene mutation
     Route: 065
     Dates: start: 20211213, end: 202201
  2. GILTERITINIB [Suspect]
     Active Substance: GILTERITINIB
     Indication: Acute myeloid leukaemia recurrent
     Route: 065
     Dates: start: 20220107, end: 20220108
  3. AZACITIDINE [Concomitant]
     Active Substance: AZACITIDINE
     Indication: Product used for unknown indication
     Dosage: UNK UNK, UNKNOWN FREQ.
     Route: 065

REACTIONS (17)
  - Differentiation syndrome [Fatal]
  - Anuria [Not Recovered/Not Resolved]
  - Hypotension [Not Recovered/Not Resolved]
  - Leukopenia [Not Recovered/Not Resolved]
  - Pancytopenia [Not Recovered/Not Resolved]
  - Renal failure [Not Recovered/Not Resolved]
  - C-reactive protein increased [Not Recovered/Not Resolved]
  - Dizziness [Not Recovered/Not Resolved]
  - Syncope [Not Recovered/Not Resolved]
  - Leukocytosis [Unknown]
  - Ascites [Unknown]
  - Ventricular tachycardia [Unknown]
  - Oedema [Unknown]
  - Pancreatitis [Unknown]
  - Blood triglycerides increased [Unknown]
  - Metabolic acidosis [Not Recovered/Not Resolved]
  - Ventricular arrhythmia [Unknown]

NARRATIVE: CASE EVENT DATE: 20220107
